FAERS Safety Report 8457959-5 (Version None)
Quarter: 2012Q2

REPORT INFORMATION
  Report Type: 
  Country: None (occurrence: None)
  Receive Date: 20120323
  Receipt Date: 20111012
  Transmission Date: 20120825
  Serious: Yes (Hospitalization)
  Sender: FDA-Public Use
  Company Number: 163-21880-11101524

PATIENT
  Sex: Male

DRUGS (2)
  1. DEXAMETHASONE (DEXAMETHASONE) [Concomitant]
  2. REVLIMID [Suspect]
     Indication: MULTIPLE MYELOMA
     Dosage: 10 MG, 1 IN 1 D, PO
     Route: 048
     Dates: start: 20090501

REACTIONS (3)
  - FULL BLOOD COUNT DECREASED [None]
  - EXFOLIATIVE RASH [None]
  - PSEUDOMONAS INFECTION [None]
